FAERS Safety Report 5023601-9 (Version None)
Quarter: 2006Q2

REPORT INFORMATION
  Report Type: 
  Country: None (occurrence: None)
  Receive Date: 20060428
  Receipt Date: 20060125
  Transmission Date: 20061013
  Serious: No
  Sender: FDA-Public Use
  Company Number: WAES 0601USA03014

PATIENT
  Age: 50 Year
  Sex: Female

DRUGS (2)
  1. EMEND [Suspect]
     Indication: NAUSEA
     Dosage: 125 MG/1X/PO
     Route: 048
     Dates: start: 20060125, end: 20060125
  2. COUMADIN [Concomitant]

REACTIONS (1)
  - WHITE BLOOD CELL COUNT DECREASED [None]
